FAERS Safety Report 5813742-8 (Version None)
Quarter: 2008Q3

REPORT INFORMATION
  Report Type: 
  Country: None (occurrence: None)
  Receive Date: 20080717
  Receipt Date: 20080711
  Transmission Date: 20090109
  Serious: Yes (Hospitalization)
  Sender: FDA-Public Use
  Company Number: US-BRISTOL-MYERS SQUIBB COMPANY-14257752

PATIENT
  Age: 64 Year
  Sex: Male
  Weight: 96 kg

DRUGS (2)
  1. CISPLATIN [Suspect]
     Indication: HEAD AND NECK CANCER
     Dates: start: 20080610, end: 20080610
  2. RADIATION THERAPY [Suspect]
     Indication: HEAD AND NECK CANCER
     Dosage: 1 DOSAGE FORM=41 GY EXT BEAM 3D 24 FRACTIONS IN 14 DAYS.
     Dates: start: 20080701, end: 20080701

REACTIONS (1)
  - WOUND INFECTION [None]
